FAERS Safety Report 6059496-4 (Version None)
Quarter: 2009Q1

REPORT INFORMATION
  Report Type: 
  Country: None (occurrence: None)
  Receive Date: 20090127
  Receipt Date: 20090127
  Transmission Date: 20090719
  Serious: No
  Sender: FDA-Public Use
  Company Number: None

PATIENT
  Age: 36 Year
  Sex: Female
  Weight: 78 kg

DRUGS (3)
  1. CYMBALTA [Suspect]
     Indication: MUSCULOSKELETAL PAIN
     Dosage: 1 CAPSULE DAILY PO
     Route: 048
     Dates: start: 20090123, end: 20090123
  2. CYMBALTA [Suspect]
     Indication: NERVE COMPRESSION
     Dosage: 1 CAPSULE DAILY PO
     Route: 048
     Dates: start: 20090123, end: 20090123
  3. CYMBALTA [Suspect]
     Dosage: 1 CAPSULE DAILY PO
     Route: 048
     Dates: start: 20090126, end: 20090126

REACTIONS (2)
  - NAUSEA [None]
  - VOMITING [None]
